FAERS Safety Report 6960784 (Version 3)
Quarter: 2014Q3

REPORT INFORMATION
  Report Type: Spontaneous
  Country: US (occurrence: None)
  Receive Date: 20090326
  Receipt Date: 20140925
  Transmission Date: 20150326
  Serious: Yes (Other)
  Sender: FDA-Public Use
  Company Number: 2009S1002479

PATIENT
  Age: 58 Year
  Sex: Female

DRUGS (9)
  1. PRILOSEC (OMEPRAZOLE) [Concomitant]
     Active Substance: OMEPRAZOLE MAGNESIUM
  2. ZESTORETIC (HYDROCHLOROTHIAZIDE, LISINOPRIL) [Concomitant]
  3. CYTOMEL (LIOTHYRONINE SODIUM) [Concomitant]
  4. BEXTRA (PARECOXIB SODIUM) [Concomitant]
     Active Substance: PARECOXIB SODIUM
  5. LEVOXYL (LEVOTHYROXINE SODIUM) [Concomitant]
  6. PREVACID [Concomitant]
     Active Substance: LANSOPRAZOLE
  7. CITRUCEL (METHYLCELLULOSE) [Concomitant]
  8. PHOSPHO-SODA [Suspect]
     Active Substance: SODIUM PHOSPHATE, DIBASIC\SODIUM PHOSPHATE, MONOBASIC
     Indication: COLONOSCOPY
     Dosage: PO
     Route: 048
     Dates: start: 20071204, end: 20071205
  9. CENESTIN (ESTROGENS CONJUGATED) [Concomitant]

REACTIONS (7)
  - Hypovolaemia [None]
  - Renal atrophy [None]
  - Renal failure acute [None]
  - Renal artery stenosis [None]
  - Blood parathyroid hormone increased [None]
  - Renal failure chronic [None]
  - Abdominal pain [None]

NARRATIVE: CASE EVENT DATE: 200712
